APPROVED DRUG PRODUCT: POLY-PRED
Active Ingredient: NEOMYCIN SULFATE; POLYMYXIN B SULFATE; PREDNISOLONE ACETATE
Strength: EQ 0.35% BASE;10,000 UNITS/ML;0.5%
Dosage Form/Route: SUSPENSION/DROPS;OPHTHALMIC
Application: N050081 | Product #002
Applicant: ALLERGAN PHARMACEUTICAL
Approved: Approved Prior to Jan 1, 1982 | RLD: No | RS: No | Type: DISCN